FAERS Safety Report 25746611 (Version 3)
Quarter: 2025Q4

REPORT INFORMATION
  Report Type: Other
  Country: GB (occurrence: GB)
  Receive Date: 20250901
  Receipt Date: 20251013
  Transmission Date: 20260119
  Serious: Yes (Congenital Anomaly, Other)
  Sender: GLENMARK
  Company Number: None

PATIENT
  Sex: Male

DRUGS (2)
  1. TOPIRAMATE [Suspect]
     Active Substance: TOPIRAMATE
     Indication: Intracranial pressure increased
     Dosage: 100 MILLIGRAM, BID (100MG MORNING AND NIGHT)
     Route: 065
     Dates: start: 20130101
  2. DIAMOX SEQUELS [Concomitant]
     Active Substance: ACETAZOLAMIDE
     Indication: Intracranial pressure increased
     Dosage: UNK
     Route: 065
     Dates: start: 20130101

REACTIONS (8)
  - Autism spectrum disorder [Not Recovered/Not Resolved]
  - Lung disorder [Not Recovered/Not Resolved]
  - Rhinitis allergic [Not Recovered/Not Resolved]
  - Gastrointestinal perforation [Unknown]
  - Developmental delay [Unknown]
  - Testicular cyst [Unknown]
  - Cryptorchism [Unknown]
  - Foetal exposure via father [Unknown]

NARRATIVE: CASE EVENT DATE: 20140905
